FAERS Safety Report 8488067-5 (Version None)
Quarter: 2012Q3

REPORT INFORMATION
  Report Type: 
  Country: None (occurrence: None)
  Receive Date: 20120705
  Receipt Date: 20120625
  Transmission Date: 20120928
  Serious: Yes (Other)
  Sender: FDA-Public Use
  Company Number: BR-BRISTOL-MYERS SQUIBB COMPANY-16714420

PATIENT
  Age: 68 Year
  Sex: Male
  Weight: 102 kg

DRUGS (3)
  1. WARFARIN SODIUM [Concomitant]
     Indication: THROMBOSIS
     Route: 048
     Dates: start: 20090101
  2. IRBESARTAN AND HYDROCHLOROTHIAZIDE [Suspect]
     Indication: BLOOD PRESSURE MANAGEMENT
     Dosage: 1 DF : 2 TABS ONE IN MRNG,ONE AT NIGHT,APROZIDE 300MG/12.5MG
     Route: 048
     Dates: start: 20010101
  3. ATENOLOL [Concomitant]
     Indication: HYPERTENSION
     Dosage: 1 DF: 1 TAB
     Route: 048
     Dates: start: 20010101

REACTIONS (8)
  - VASCULAR GRAFT [None]
  - OVERWEIGHT [None]
  - FATIGUE [None]
  - STENT PLACEMENT [None]
  - LIGAMENT RUPTURE [None]
  - DRUG INEFFECTIVE [None]
  - FALL [None]
  - CHEST PAIN [None]
